FAERS Safety Report 4457211-9 (Version None)
Quarter: 2004Q3

REPORT INFORMATION
  Report Type: 
  Country: None (occurrence: None)
  Receive Date: 20040921
  Receipt Date: 20040914
  Transmission Date: 20050211
  Serious: Yes (Death)
  Sender: FDA-Public Use
  Company Number: 2004233298US

PATIENT
  Age: 48 Year
  Sex: Male

DRUGS (6)
  1. CAMPTOSAR [Suspect]
     Indication: GASTRIC CANCER
     Dosage: 50 MG/M2, D1 D8 OF 21 DAY CYCLE, IV
     Route: 042
     Dates: start: 20030514, end: 20030521
  2. CISPLATIN [Suspect]
     Indication: GASTRIC CANCER
     Dosage: 25 MG/M2, D1 D8 OF 21 DAY CYCLE, IV
     Route: 042
     Dates: start: 20030514, end: 20030521
  3. COMPARATOR-DOCETAXEL (DOCETAXEL) INJECTION [Suspect]
     Indication: GASTRIC CANCER
     Dosage: 30 MG/M2, D1 D8 OF 21 DAY CYCLE, IV
     Route: 042
     Dates: start: 20030514, end: 20030521
  4. OXYCONTIN [Concomitant]
  5. OXYCODONE (OXYCODONE) [Concomitant]
  6. SENOKOT [Concomitant]

REACTIONS (7)
  - ANOREXIA [None]
  - CONSTIPATION [None]
  - DEHYDRATION [None]
  - DIARRHOEA [None]
  - FATIGUE [None]
  - NAUSEA [None]
  - WEIGHT DECREASED [None]
